FAERS Safety Report 6986115-2 (Version None)
Quarter: 2010Q3

REPORT INFORMATION
  Report Type: 
  Country: None (occurrence: None)
  Receive Date: 20100910
  Receipt Date: 20100903
  Transmission Date: 20110219
  Serious: Yes (Hospitalization)
  Sender: FDA-Public Use
  Company Number: OSCN-NO-1009S-0239

PATIENT
  Age: 56 Year
  Sex: Male

DRUGS (1)
  1. OMNISCAN [Suspect]
     Indication: PRODUCT USED FOR UNKNOWN INDICATION
     Dosage: 12 ML, SINGLE DOSE, I.V.
     Route: 042
     Dates: start: 20100526, end: 20100526

REACTIONS (3)
  - AZOTAEMIA [None]
  - OLIGURIA [None]
  - RECTAL CANCER [None]
